FAERS Safety Report 15752323 (Version 1)
Quarter: 2018Q4

REPORT INFORMATION
  Report Type: Spontaneous
  Country: US (occurrence: US)
  Receive Date: 20181221
  Receipt Date: 20181221
  Transmission Date: 20190205
  Serious: Yes (Hospitalization)
  Sender: FDA-Public Use
  Company Number: US-TEVA-2018-US-988851

PATIENT
  Age: 71 Year
  Sex: Female

DRUGS (1)
  1. DIAZEPAM TABLETS [Suspect]
     Active Substance: DIAZEPAM
     Route: 065
     Dates: start: 20181020, end: 20181111

REACTIONS (6)
  - Cerebrovascular accident [Unknown]
  - Delusional perception [Unknown]
  - Wrong technique in product usage process [Unknown]
  - Decreased appetite [Unknown]
  - Drug screen positive [Unknown]
  - Somnolence [Unknown]

NARRATIVE: CASE EVENT DATE: 20181020
